FAERS Safety Report 6899678-2 (Version None)
Quarter: 2010Q3

REPORT INFORMATION
  Report Type: 
  Country: None (occurrence: None)
  Receive Date: 20100803
  Receipt Date: 20100722
  Transmission Date: 20110219
  Serious: Yes (Other)
  Sender: FDA-Public Use
  Company Number: US-RANBAXY-2010US-36167

PATIENT

DRUGS (2)
  1. CALAN [Suspect]
     Dosage: 120 MG, QD
     Route: 065
  2. NORVASC [Suspect]
     Indication: HYPERTENSION
     Dosage: 10 MG, QD
     Route: 048

REACTIONS (2)
  - STENT PLACEMENT [None]
  - SWELLING [None]
